FAERS Safety Report 14520229 (Version 2)
Quarter: 2018Q3

REPORT INFORMATION
  Report Type: Spontaneous
  Country: FR (occurrence: FR)
  Receive Date: 20180212
  Receipt Date: 20180917
  Transmission Date: 20181010
  Serious: Yes (Hospitalization)
  Sender: FDA-Public Use
  Company Number: FR-PFIZER INC-2018055947

PATIENT
  Age: 26 Year
  Sex: Male
  Weight: 80 kg

DRUGS (3)
  1. PARACETAMOL [Suspect]
     Active Substance: ACETAMINOPHEN
     Dosage: 20 G, UNK
     Route: 048
     Dates: start: 20180120, end: 20180120
  2. XANAX [Suspect]
     Active Substance: ALPRAZOLAM
     Dosage: 5 DF, UNK
     Route: 048
     Dates: start: 20180120, end: 20180120
  3. THERALENE [Suspect]
     Active Substance: TRIMEPRAZINE
     Dosage: 12 DF, UNK
     Route: 048
     Dates: start: 20180120, end: 20180120

REACTIONS (4)
  - Analgesic drug level increased [Recovering/Resolving]
  - Benzodiazepine drug level [Unknown]
  - Toxicity to various agents [Recovered/Resolved]
  - Prothrombin time shortened [Recovered/Resolved]

NARRATIVE: CASE EVENT DATE: 20180120
